FAERS Safety Report 22613518 (Version 1)
Quarter: 2023Q2

REPORT INFORMATION
  Report Type: Spontaneous
  Country: GB (occurrence: GB)
  Receive Date: 20230619
  Receipt Date: 20230619
  Transmission Date: 20230722
  Serious: Yes (Hospitalization, Other)
  Sender: FDA-Public Use
  Company Number: GB-MYLANLABS-2023M1051404

PATIENT
  Age: 52 Year
  Sex: Male

DRUGS (4)
  1. SERTRALINE [Suspect]
     Active Substance: SERTRALINE HYDROCHLORIDE
     Indication: Product used for unknown indication
     Dosage: 50 MILLIGRAM, ONCE A DAY
     Route: 065
  2. CHLORPROMAZINE [Suspect]
     Active Substance: CHLORPROMAZINE
     Indication: Product used for unknown indication
     Dosage: UNK
     Route: 065
     Dates: start: 2016
  3. CLOZARIL [Suspect]
     Active Substance: CLOZAPINE
     Indication: Schizophrenia
     Dosage: 300 MILLIGRAM, ONCE A DAY ( (100MG OM AND 200MG ON)
     Route: 048
     Dates: start: 20160506, end: 20230518
  4. VALPROIC ACID [Suspect]
     Active Substance: VALPROIC ACID
     Indication: Prophylaxis
     Dosage: 500 MILLIGRAM, TWO TIMES A DAY
     Route: 065
     Dates: end: 20230518

REACTIONS (18)
  - Anaemia macrocytic [Unknown]
  - Folate deficiency [Unknown]
  - Body temperature increased [Unknown]
  - Malaise [Unknown]
  - Infection [Unknown]
  - Antipsychotic drug level increased [Unknown]
  - Haemoglobin decreased [Not Recovered/Not Resolved]
  - Salivary hypersecretion [Unknown]
  - Weight increased [Unknown]
  - Pancytopenia [Unknown]
  - Pallor [Unknown]
  - Blood potassium decreased [Unknown]
  - Blood phosphorus decreased [Unknown]
  - Platelet count decreased [Recovered/Resolved]
  - White blood cell count decreased [Recovering/Resolving]
  - Neutrophil count decreased [Recovered/Resolved]
  - Diarrhoea [Unknown]
  - Dizziness [Unknown]

NARRATIVE: CASE EVENT DATE: 20230516
